FAERS Safety Report 5907830-5 (Version None)
Quarter: 2008Q4

REPORT INFORMATION
  Report Type: 
  Country: None (occurrence: None)
  Receive Date: 20081003
  Receipt Date: 20080930
  Transmission Date: 20090506
  Serious: Yes (Death, Hospitalization)
  Sender: FDA-Public Use
  Company Number: BR-PFIZER INC-2008074165

PATIENT
  Sex: Female

DRUGS (9)
  1. CELECOXIB [Suspect]
     Indication: OSTEOARTHRITIS
     Dates: start: 20080513, end: 20080901
  2. SERTRALINE [Concomitant]
     Route: 048
     Dates: start: 20080615
  3. VALSARTAN [Concomitant]
     Route: 048
     Dates: start: 20050101
  4. ALENDRONATE SODIUM [Concomitant]
     Route: 048
     Dates: start: 20060101
  5. ACETAMINOPHEN [Concomitant]
     Route: 048
     Dates: start: 20080507
  6. CALCIUM CARBONATE [Concomitant]
     Route: 048
     Dates: start: 20060101
  7. VITAMIN D3 [Concomitant]
     Route: 048
     Dates: start: 20060101
  8. DIACEREIN [Concomitant]
     Route: 048
     Dates: start: 20080730
  9. ARCOXIA [Concomitant]
     Route: 048
     Dates: start: 20080201, end: 20080506

REACTIONS (2)
  - CARDIOGENIC SHOCK [None]
  - PULMONARY EMBOLISM [None]
